FAERS Safety Report 18689595 (Version 1)
Quarter: 2020Q4

REPORT INFORMATION
  Report Type: Spontaneous
  Country: US (occurrence: US)
  Receive Date: 20201231
  Receipt Date: 20201231
  Transmission Date: 20210114
  Serious: Yes (Hospitalization)
  Sender: FDA-Public Use
  Company Number: US-TEVA-2020-US-1864098

PATIENT
  Sex: Female

DRUGS (2)
  1. FLUTICASONE. [Suspect]
     Active Substance: FLUTICASONE
  2. FLUTICASONE. [Suspect]
     Active Substance: FLUTICASONE
     Route: 065
     Dates: start: 2019

REACTIONS (2)
  - Constipation [Unknown]
  - Dry skin [Unknown]
